FAERS Safety Report 25736637 (Version 1)
Quarter: 2025Q3

REPORT INFORMATION
  Report Type: Spontaneous
  Country: US (occurrence: None)
  Receive Date: 20250828
  Receipt Date: 20250828
  Transmission Date: 20251021
  Serious: Yes (Hospitalization)
  Sender: FDA-CTU
  Company Number: None

PATIENT
  Sex: Female

DRUGS (11)
  1. TACROLIMUS [Suspect]
     Active Substance: TACROLIMUS
     Indication: Renal transplant
     Dosage: FREQUENCY : TWICE A DAY;?
     Route: 048
     Dates: start: 20230420
  2. AMLODIPINE [Concomitant]
     Active Substance: AMLODIPINE BESYLATE
  3. CELLCEPT [Concomitant]
     Active Substance: MYCOPHENOLATE MOFETIL
  4. MEPRON SUS [Concomitant]
  5. OXYCODONE [Concomitant]
     Active Substance: OXYCODONE
  6. PEPCID TAB 20MG [Concomitant]
  7. PREDNISONE [Concomitant]
     Active Substance: PREDNISONE
  8. PROGRAF CAP1MG [Concomitant]
  9. TACROLIMUS [Concomitant]
     Active Substance: TACROLIMUS
  10. TACROLIMUS A [Concomitant]
  11. VALCYTE TAB 450MG [Concomitant]

REACTIONS (1)
  - Blood creatine increased [None]
